FAERS Safety Report 25280300 (Version 1)
Quarter: 2025Q2

REPORT INFORMATION
  Report Type: Spontaneous
  Country: CN (occurrence: CN)
  Receive Date: 20250507
  Receipt Date: 20250507
  Transmission Date: 20250716
  Serious: Yes (Other)
  Sender: JIANGSU HENGRUI
  Company Number: CN-JIANGSU HENGRUI PHARMACEUTICALS CO., LTD.-H2024206272

PATIENT
  Age: 70 Year
  Weight: 80 kg

DRUGS (1)
  1. GADOTERATE MEGLUMINE [Suspect]
     Active Substance: GADOTERATE MEGLUMINE
     Indication: Computerised tomogram

REACTIONS (3)
  - Oxygen saturation decreased [Recovered/Resolved]
  - Rash pruritic [Recovered/Resolved]
  - Muscle twitching [Recovered/Resolved]
